FAERS Safety Report 6392991-7 (Version None)
Quarter: 2009Q4

REPORT INFORMATION
  Report Type: 
  Country: None (occurrence: None)
  Receive Date: 20091008
  Receipt Date: 20090930
  Transmission Date: 20100525
  Serious: Yes (Hospitalization)
  Sender: FDA-Public Use
  Company Number: US-BIOGENIDEC-2009BI029025

PATIENT
  Age: 40 Year
  Sex: Female
  Weight: 99 kg

DRUGS (1)
  1. AVONEX [Suspect]
     Indication: MULTIPLE SCLEROSIS
     Route: 030
     Dates: start: 20090316, end: 20090901

REACTIONS (11)
  - ABASIA [None]
  - ABDOMINAL PAIN [None]
  - CYSTITIS [None]
  - KIDNEY INFECTION [None]
  - MALAISE [None]
  - MEMORY IMPAIRMENT [None]
  - MENTAL DISORDER [None]
  - MULTIPLE SCLEROSIS [None]
  - MUSCULAR WEAKNESS [None]
  - RENAL FAILURE ACUTE [None]
  - TOOTH DISORDER [None]
